FAERS Safety Report 9987549 (Version 1)
Quarter: 2014Q1

REPORT INFORMATION
  Report Type: Spontaneous
  Country: US (occurrence: US)
  Receive Date: 20140307
  Receipt Date: 20140307
  Transmission Date: 20141002
  Serious: No
  Sender: FDA-Public Use
  Company Number: US-AMGEN-USASP2014011759

PATIENT
  Age: 43 Year
  Sex: Female

DRUGS (1)
  1. ENBREL [Suspect]
     Indication: PSORIATIC ARTHROPATHY
     Dosage: 25 MG, 2 TIMES/WK
     Route: 065
     Dates: start: 20140203

REACTIONS (9)
  - Rubber sensitivity [Recovered/Resolved]
  - Urticaria [Recovered/Resolved]
  - Feeling abnormal [Not Recovered/Not Resolved]
  - Chest discomfort [Recovered/Resolved]
  - Lip swelling [Recovered/Resolved]
  - Nasal congestion [Recovered/Resolved]
  - Paraesthesia oral [Recovered/Resolved]
  - Contusion [Not Recovered/Not Resolved]
  - Erythema [Not Recovered/Not Resolved]
